FAERS Safety Report 19514923 (Version 3)
Quarter: 2021Q3

REPORT INFORMATION
  Report Type: Spontaneous
  Country: US (occurrence: US)
  Receive Date: 20210709
  Receipt Date: 20210817
  Transmission Date: 20211014
  Serious: Yes (Death, Other)
  Sender: FDA-Public Use
  Company Number: US-PFIZER INC-2016383993

PATIENT
  Age: 57 Year
  Sex: Male
  Weight: 85.05 kg

DRUGS (2)
  1. PRISTIQ EXTENDED?RELEASE [Suspect]
     Active Substance: DESVENLAFAXINE SUCCINATE
     Dosage: 50 MG, DAILY (50MG BY MOUTH DAILY)
     Route: 048
  2. PRISTIQ EXTENDED?RELEASE [Suspect]
     Active Substance: DESVENLAFAXINE SUCCINATE
     Indication: PERSISTENT DEPRESSIVE DISORDER
     Dosage: 100 MG, DAILY (50 MG TABLET; 2 TABLETS BY MOUTH)
     Route: 048

REACTIONS (2)
  - Cerebrovascular accident [Fatal]
  - Aortic aneurysm [Fatal]

NARRATIVE: CASE EVENT DATE: 20210629
